FAERS Safety Report 10670046 (Version 12)
Quarter: 2019Q2

REPORT INFORMATION
  Report Type: Spontaneous
  Country: CA (occurrence: CA)
  Receive Date: 20141223
  Receipt Date: 20190510
  Transmission Date: 20190711
  Serious: Yes (Hospitalization, Other)
  Sender: FDA-Public Use
  Company Number: CA-ROCHE-1511391

PATIENT
  Age: 10 Year
  Sex: Female

DRUGS (16)
  1. XOLAIR [Suspect]
     Active Substance: OMALIZUMAB
     Route: 058
     Dates: start: 20170713
  2. XOLAIR [Suspect]
     Active Substance: OMALIZUMAB
     Route: 058
     Dates: start: 20171115
  3. XOLAIR [Suspect]
     Active Substance: OMALIZUMAB
     Route: 058
     Dates: start: 20180705
  4. FLOVENT [Concomitant]
     Active Substance: FLUTICASONE PROPIONATE
     Indication: PRODUCT USED FOR UNKNOWN INDICATION
     Route: 065
  5. SINGULAIR [Concomitant]
     Active Substance: MONTELUKAST SODIUM
     Indication: PRODUCT USED FOR UNKNOWN INDICATION
     Route: 065
  6. XOLAIR [Suspect]
     Active Substance: OMALIZUMAB
     Route: 058
  7. XOLAIR [Suspect]
     Active Substance: OMALIZUMAB
     Route: 058
     Dates: start: 20170921
  8. XOLAIR [Suspect]
     Active Substance: OMALIZUMAB
     Indication: ASTHMA
     Route: 058
     Dates: start: 20121019
  9. XOLAIR [Suspect]
     Active Substance: OMALIZUMAB
     Route: 058
     Dates: start: 20170823
  10. XOLAIR [Suspect]
     Active Substance: OMALIZUMAB
     Route: 058
     Dates: start: 20171129
  11. XOLAIR [Suspect]
     Active Substance: OMALIZUMAB
     Route: 058
     Dates: start: 20180110
  12. XOLAIR [Suspect]
     Active Substance: OMALIZUMAB
     Route: 058
     Dates: start: 20170727
  13. XOLAIR [Suspect]
     Active Substance: OMALIZUMAB
     Route: 058
     Dates: start: 20170907
  14. XOLAIR [Suspect]
     Active Substance: OMALIZUMAB
     Route: 058
     Dates: start: 20180621
  15. XOLAIR [Suspect]
     Active Substance: OMALIZUMAB
     Route: 058
     Dates: start: 20190418
  16. XOLAIR [Suspect]
     Active Substance: OMALIZUMAB
     Route: 058
     Dates: start: 20170810

REACTIONS (21)
  - Middle insomnia [Unknown]
  - Asthma [Unknown]
  - Forced expiratory volume decreased [Unknown]
  - Chest pain [Unknown]
  - Erythema [Unknown]
  - Blood immunoglobulin E increased [Unknown]
  - Pulmonary function test decreased [Unknown]
  - Discomfort [Recovering/Resolving]
  - Blood pressure decreased [Not Recovered/Not Resolved]
  - Rib fracture [Unknown]
  - Nasopharyngitis [Unknown]
  - Lip discolouration [Unknown]
  - Pseudomonas infection [Not Recovered/Not Resolved]
  - Drug ineffective [Unknown]
  - Bronchopulmonary aspergillosis allergic [Unknown]
  - Cough [Unknown]
  - Rhinorrhoea [Unknown]
  - Musculoskeletal chest pain [Recovering/Resolving]
  - Chapped lips [Unknown]
  - Cystic fibrosis [Unknown]
  - Migraine [Unknown]

NARRATIVE: CASE EVENT DATE: 20121219
